FAERS Safety Report 17401805 (Version 1)
Quarter: 2020Q1

REPORT INFORMATION
  Report Type: Spontaneous
  Country: JP (occurrence: JP)
  Receive Date: 20200211
  Receipt Date: 20200211
  Transmission Date: 20200409
  Serious: Yes (Death, Life-Threatening, Other)
  Sender: FDA-Public Use
  Company Number: JP-BRACCO-2020JP00583

PATIENT
  Age: 80 Year
  Sex: Male

DRUGS (11)
  1. DIART [Concomitant]
     Active Substance: AZOSEMIDE
  2. NU-LOTAN [Concomitant]
     Active Substance: LOSARTAN POTASSIUM
  3. FAMOTIDINE. [Concomitant]
     Active Substance: FAMOTIDINE
     Indication: ALLERGY PROPHYLAXIS
     Dosage: 20MG
     Route: 042
     Dates: start: 20191210
  4. IOPAMIRON [Suspect]
     Active Substance: IOPAMIDOL
     Indication: ANGIOCARDIOGRAM
     Dosage: 90 ML, ONCE
     Route: 042
     Dates: start: 20191210, end: 20191210
  5. ELIQUIS [Concomitant]
     Active Substance: APIXABAN
  6. SOLU-MEDROL [Concomitant]
     Active Substance: METHYLPREDNISOLONE SODIUM SUCCINATE
     Indication: ALLERGY PROPHYLAXIS
     Dosage: 125MG
     Route: 042
     Dates: start: 20191210
  7. MYSLEE [Concomitant]
     Active Substance: ZOLPIDEM TARTRATE
  8. SODIUM CHLORIDE. [Concomitant]
     Active Substance: SODIUM CHLORIDE
     Indication: ALLERGY PROPHYLAXIS
     Dosage: UNK
     Dates: start: 20191210
  9. POLARAMINE [Concomitant]
     Active Substance: DEXCHLORPHENIRAMINE MALEATE
     Indication: ALLERGY PROPHYLAXIS
     Dosage: 5MG
     Route: 042
     Dates: start: 20191210
  10. TAKEPRON [Concomitant]
     Active Substance: LANSOPRAZOLE
  11. FLIVAS [Concomitant]
     Active Substance: NAFTOPIDIL

REACTIONS (4)
  - Cardiac dysfunction [Unknown]
  - Circulatory collapse [Recovering/Resolving]
  - Anaphylactic shock [Fatal]
  - Cerebral infarction [Unknown]

NARRATIVE: CASE EVENT DATE: 20191210
